FAERS Safety Report 8341511-6 (Version None)
Quarter: 2012Q2

REPORT INFORMATION
  Report Type: 
  Country: None (occurrence: None)
  Receive Date: 20120507
  Receipt Date: 20120424
  Transmission Date: 20120825
  Serious: Yes (Hospitalization)
  Sender: FDA-Public Use
  Company Number: FR-CELGENEUS-056-21880-12042668

PATIENT
  Sex: Male
  Weight: 67 kg

DRUGS (9)
  1. REVLIMID [Suspect]
     Indication: MULTIPLE MYELOMA
     Dosage: 15 MILLIGRAM
     Route: 048
     Dates: start: 20110902
  2. ASPIRIN [Concomitant]
     Indication: PROPHYLAXIS
     Route: 048
  3. DEXAMETHASONE [Concomitant]
     Route: 048
     Dates: start: 20111031, end: 20111120
  4. TRAMADOL HCL [Concomitant]
     Indication: BONE PAIN
     Route: 065
  5. NEXIUM [Concomitant]
     Route: 065
  6. DEXAMETHASONE [Concomitant]
     Indication: MULTIPLE MYELOMA
     Route: 048
     Dates: start: 20110902, end: 20110922
  7. REVLIMID [Suspect]
     Dosage: 15 MILLIGRAM
     Route: 048
     Dates: start: 20120413
  8. PHENOXYMETHYL PENICILLIN [Concomitant]
     Indication: PROPHYLAXIS
     Route: 065
  9. LYRICA [Concomitant]
     Indication: BONE PAIN
     Route: 065

REACTIONS (2)
  - HYPOALBUMINAEMIA [None]
  - GENERALISED OEDEMA [None]
